FAERS Safety Report 25408450 (Version 1)
Quarter: 2025Q2

REPORT INFORMATION
  Report Type: Spontaneous
  Country: US (occurrence: US)
  Receive Date: 20250606
  Receipt Date: 20250606
  Transmission Date: 20250717
  Serious: No
  Sender: BIOGEN
  Company Number: US-BIOGEN-2025BI01312559

PATIENT
  Age: 35 Year
  Sex: Female

DRUGS (1)
  1. ZURZUVAE [Suspect]
     Active Substance: ZURANOLONE
     Indication: Perinatal depression
     Route: 050
     Dates: start: 20250521, end: 20250522

REACTIONS (5)
  - Mania [Unknown]
  - Anxiety [Unknown]
  - Diarrhoea [Unknown]
  - Dry mouth [Unknown]
  - Confusional state [Unknown]

NARRATIVE: CASE EVENT DATE: 20250522
